FAERS Safety Report 10352585 (Version 1)
Quarter: 2014Q3

REPORT INFORMATION
  Report Type: Spontaneous
  Country: US (occurrence: US)
  Receive Date: 20140730
  Receipt Date: 20140730
  Transmission Date: 20150326
  Serious: No
  Sender: FDA-Public Use
  Company Number: US-ABBVIE-13P-163-1185216-00

PATIENT
  Sex: Female

DRUGS (1)
  1. SYNTHROID [Suspect]
     Active Substance: LEVOTHYROXINE SODIUM
     Indication: PRODUCT USED FOR UNKNOWN INDICATION
     Dosage: 2.25 TABLETS DAILY

REACTIONS (5)
  - Heart rate increased [Unknown]
  - Palpitations [Unknown]
  - Drug effect incomplete [Unknown]
  - Unevaluable event [Unknown]
  - Headache [Unknown]
